FAERS Safety Report 9353661 (Version 1)
Quarter: 2013Q2

REPORT INFORMATION
  Report Type: Spontaneous
  Country: US (occurrence: US)
  Receive Date: 20130618
  Receipt Date: 20130618
  Transmission Date: 20140414
  Serious: No
  Sender: FDA-Public Use
  Company Number: US-BAYER-2013-073789

PATIENT
  Age: 45 Year
  Sex: Female

DRUGS (1)
  1. CLIMARA PRO [Suspect]
     Indication: HOT FLUSH
     Dosage: UNK UNK, CONT
     Route: 062
     Dates: start: 201302, end: 20130602

REACTIONS (4)
  - Product adhesion issue [None]
  - Hot flush [Not Recovered/Not Resolved]
  - Headache [None]
  - Irritability [Not Recovered/Not Resolved]
